FAERS Safety Report 23554530 (Version 2)
Quarter: 2024Q1

REPORT INFORMATION
  Report Type: Spontaneous
  Country: SE (occurrence: SE)
  Receive Date: 20240222
  Receipt Date: 20240328
  Transmission Date: 20240410
  Serious: Yes (Hospitalization)
  Sender: FDA-Public Use
  Company Number: SE-NOVOPROD-1169963

PATIENT
  Age: 50 Year
  Sex: Male

DRUGS (18)
  1. HUMALOG [Suspect]
     Active Substance: INSULIN LISPRO
     Indication: Type 1 diabetes mellitus
     Dosage: 38 U, UNKNOWN
     Route: 065
  2. TRESIBA [Suspect]
     Active Substance: INSULIN DEGLUDEC
     Indication: Type 1 diabetes mellitus
     Dosage: UNK UNK, UNKNOWN
     Route: 065
  3. SODIUM PICOSULFATE [Concomitant]
     Active Substance: SODIUM PICOSULFATE
     Indication: Constipation
     Dosage: UNK (10 DROPS AS NEEDED)(ALTERNATIVE TO MOVICOL)
     Route: 048
  4. BISOPROLOL [Concomitant]
     Active Substance: BISOPROLOL\BISOPROLOL FUMARATE
     Indication: Cardiac disorder
     Dosage: 2.5 MG (1 TABLET AT 8)
  5. DESLORATADINE [Concomitant]
     Active Substance: DESLORATADINE
     Indication: Pruritus
     Dosage: UNK
  6. CARBOMER [Concomitant]
     Active Substance: CARBOMER
     Indication: Lacrimation disorder
     Dosage: UNK
  7. NEBIDO [TESTOSTERONE] [Concomitant]
     Indication: Blood testosterone abnormal
     Dosage: UNK (1000MG/4ML)
  8. AMITRIPTYLINE [Concomitant]
     Active Substance: AMITRIPTYLINE
     Indication: Neuralgia
     Dosage: 10 MG(2 TABLETS AT 20)
  9. ESOMEPRAZOLE ACTAVIS [ESOMEPRAZOLE SODIUM] [Concomitant]
     Indication: Gastrointestinal disorder
     Dosage: UNK(1 TABLET AT 20)
  10. FLUOXETINE [Concomitant]
     Active Substance: FLUOXETINE HYDROCHLORIDE
     Indication: Depression
     Dosage: 20 MG, QD (1 CAPSULE AT 8:00)
  11. ZOLPIDEM TARTRATE [Concomitant]
     Active Substance: ZOLPIDEM TARTRATE
     Indication: Product used for unknown indication
     Dosage: 10 MG, QD (ALTERNATE EVERY TWO WEEK)
  12. ALPRAZOLAM [Concomitant]
     Active Substance: ALPRAZOLAM
     Indication: Anxiety
     Dosage: 1 MG (AT 8 AND 20)
  13. MOVICOLON [Concomitant]
     Active Substance: POLYETHYLENE GLYCOL 3350\POTASSIUM CHLORIDE\SODIUM BICARBONATE\SODIUM CHLORIDE
     Indication: Constipation
     Dosage: UNK (1 IN THE MORNING )
  14. DIAZEPAM [Concomitant]
     Active Substance: DIAZEPAM
     Indication: Anxiety
     Dosage: 5 MG, BID
  15. DIAZEPAM [Concomitant]
     Active Substance: DIAZEPAM
     Indication: Muscle relaxant therapy
  16. ACETYLCYSTEINE [Concomitant]
     Active Substance: ACETYLCYSTEINE
     Indication: Product used for unknown indication
     Dosage: 200 MG, AS NEEDED
  17. ORUDIS [Concomitant]
     Active Substance: KETOPROFEN
     Indication: Pain
     Dosage: UNK (200 MG, 1 AT 20)
  18. IMOVANE [Concomitant]
     Active Substance: ZOPICLONE
     Indication: Product used for unknown indication
     Dosage: 7.5 MG, QD (1 TABLET AT NIGHT)

REACTIONS (6)
  - Product confusion [Not Recovered/Not Resolved]
  - Overdose [Unknown]
  - Wrong product administered [Not Recovered/Not Resolved]
  - Product label confusion [Unknown]
  - Intercepted product administration error [Unknown]
  - Blood glucose decreased [Unknown]
